FAERS Safety Report 5735544-3 (Version None)
Quarter: 2008Q2

REPORT INFORMATION
  Report Type: 
  Country: None (occurrence: None)
  Receive Date: 20080512
  Receipt Date: 20080506
  Transmission Date: 20081010
  Serious: Yes (Death, Hospitalization)
  Sender: FDA-Public Use
  Company Number: KP-BOEHRINGER INGELHEIM GMBH, GERMANY-2008-BP-07047RO

PATIENT
  Age: 66 Year
  Sex: Female

DRUGS (3)
  1. METHOTREXATE [Suspect]
     Indication: RHEUMATOID ARTHRITIS
     Route: 048
     Dates: start: 19990101, end: 20061020
  2. PREDNISOLONE [Suspect]
     Indication: RHEUMATOID ARTHRITIS
     Route: 048
     Dates: start: 19990101, end: 20061020
  3. LAMIVUDINE [Concomitant]
     Indication: SYSTEMIC ANTIVIRAL TREATMENT
     Dates: start: 20061020

REACTIONS (9)
  - ALANINE AMINOTRANSFERASE INCREASED [None]
  - ASPARTATE AMINOTRANSFERASE INCREASED [None]
  - BLOOD BILIRUBIN INCREASED [None]
  - ENCEPHALOPATHY [None]
  - HEPATIC FAILURE [None]
  - HEPATITIS [None]
  - HEPATITIS B SURFACE ANTIGEN POSITIVE [None]
  - HYPOALBUMINAEMIA [None]
  - PROTHROMBIN TIME PROLONGED [None]
